FAERS Safety Report 4328359-4 (Version None)
Quarter: 2004Q1

REPORT INFORMATION
  Report Type: 
  Country: None (occurrence: None)
  Receive Date: 20040325
  Receipt Date: 20040219
  Transmission Date: 20041129
  Serious: No
  Sender: FDA-Public Use
  Company Number: USA-2004-0013239

PATIENT
  Sex: Female

DRUGS (1)
  1. SPECTRACEF TABELTS 200MG (CEFDITOREN PIOVOXIL) [Suspect]
     Indication: BRONCHITIS ACUTE
     Dosage: ORAL
     Route: 048

REACTIONS (1)
  - CONFUSIONAL STATE [None]
